FAERS Safety Report 9901899 (Version 1)
Quarter: 2014Q1

REPORT INFORMATION
  Report Type: Spontaneous
  Country: MX (occurrence: MX)
  Receive Date: 20140217
  Receipt Date: 20140217
  Transmission Date: 20141002
  Serious: Yes (Other)
  Sender: FDA-Public Use
  Company Number: MX-GLAXOSMITHKLINE-B0969077A

PATIENT
  Sex: Male

DRUGS (1)
  1. VENTOLIN [Suspect]
     Indication: ASTHMA
     Route: 065
     Dates: start: 20140207, end: 20140207

REACTIONS (5)
  - Malaise [Unknown]
  - Asthma [Unknown]
  - Headache [Unknown]
  - Blood pressure increased [Unknown]
  - Expired drug administered [Recovered/Resolved]
